FAERS Safety Report 5060840-5 (Version None)
Quarter: 2006Q3

REPORT INFORMATION
  Report Type: 
  Country: None (occurrence: None)
  Receive Date: 20060725
  Receipt Date: 20060522
  Transmission Date: 20061208
  Serious: Yes (Hospitalization)
  Sender: FDA-Public Use
  Company Number: NZ-GLAXOSMITHKLINE-B0425487A

PATIENT
  Age: 56 Year
  Sex: Male

DRUGS (5)
  1. MALARONE [Suspect]
     Route: 048
     Dates: start: 20051212
  2. AMOXICILLIN [Concomitant]
  3. ATENOLOL [Concomitant]
     Dosage: 25MG PER DAY
  4. ASPIRIN [Concomitant]
     Dosage: 75MG PER DAY
  5. LORATADINE [Concomitant]
     Dosage: 10MG TWICE PER DAY

REACTIONS (22)
  - ARTHRALGIA [None]
  - ASTHMA [None]
  - BAND NEUTROPHIL COUNT INCREASED [None]
  - BLOOD BILIRUBIN INCREASED [None]
  - BLOOD GLUCOSE INCREASED [None]
  - CHILLS [None]
  - DIARRHOEA [None]
  - EYE SWELLING [None]
  - HYPERSENSITIVITY [None]
  - HYPERTENSION [None]
  - LOWER RESPIRATORY TRACT INFECTION [None]
  - METAMYELOCYTE COUNT INCREASED [None]
  - NEUTROPHIL COUNT INCREASED [None]
  - NEUTROPHIL TOXIC GRANULATION PRESENT [None]
  - OSTEOARTHRITIS [None]
  - PYREXIA [None]
  - RASH PRURITIC [None]
  - RED BLOOD CELL COUNT INCREASED [None]
  - RED BLOOD CELL MORPHOLOGY ABNORMAL [None]
  - SERUM SICKNESS [None]
  - URTICARIA [None]
  - WHITE BLOOD CELL COUNT INCREASED [None]
